FAERS Safety Report 5383431-5 (Version None)
Quarter: 2007Q3

REPORT INFORMATION
  Report Type: 
  Country: None (occurrence: None)
  Receive Date: 20070710
  Receipt Date: 20070625
  Transmission Date: 20080115
  Serious: Yes (Hospitalization)
  Sender: FDA-Public Use
  Company Number: US-ELI_LILLY_AND_COMPANY-US200706005668

PATIENT
  Age: 85 Year
  Sex: Female

DRUGS (2)
  1. EVISTA [Suspect]
     Indication: OSTEOPOROSIS
     Dosage: 60 MG, UNK
     Route: 048
     Dates: start: 20070611
  2. CALTRATE [Concomitant]
     Dosage: 1000 MG, UNK

REACTIONS (3)
  - FALL [None]
  - PAIN [None]
  - SPINAL FRACTURE [None]
